FAERS Safety Report 11849320 (Version 1)
Quarter: 2015Q4

REPORT INFORMATION
  Report Type: Spontaneous
  Country: CA (occurrence: CA)
  Receive Date: 20151218
  Receipt Date: 20151218
  Transmission Date: 20160305
  Serious: Yes (Disabling)
  Sender: FDA-Public Use
  Company Number: CA-TEVA-618923ACC

PATIENT
  Age: 64 Year
  Sex: Female
  Weight: 112 kg

DRUGS (15)
  1. APO OXAZEPAM TAB 15MG [Concomitant]
  2. DETROL LA [Concomitant]
     Active Substance: TOLTERODINE TARTRATE
  3. ALLOPURINOL. [Concomitant]
     Active Substance: ALLOPURINOL
  4. HYDROCHLOROTHIAZIDE. [Concomitant]
     Active Substance: HYDROCHLOROTHIAZIDE
  5. TYLENOL WITH CODEINE [Concomitant]
     Active Substance: ACETAMINOPHEN\CODEINE PHOSPHATE
  6. METFORMIN [Suspect]
     Active Substance: METFORMIN HYDROCHLORIDE
     Indication: DIABETES MELLITUS
     Dosage: 1000 MILLIGRAM DAILY;
     Route: 048
  7. LISINOPRIL. [Concomitant]
     Active Substance: LISINOPRIL
  8. VOLTAREN [Concomitant]
     Active Substance: DICLOFENAC SODIUM
  9. APO-GLICLAZIDE [Concomitant]
  10. LIPITOR [Concomitant]
     Active Substance: ATORVASTATIN CALCIUM
  11. TALWIN [Concomitant]
     Active Substance: PENTAZOCINE LACTATE
  12. ACTOS (45MG) [Concomitant]
  13. CODEINE CONTIN [Concomitant]
     Active Substance: CODEINE SULFATE
  14. MACROBID [Concomitant]
     Active Substance: NITROFURANTOIN\NITROFURANTOIN MONOHYDRATE
  15. OPTREX STERILE EYE WASH [Concomitant]
     Route: 047

REACTIONS (2)
  - Peripheral swelling [Recovered/Resolved]
  - Product substitution issue [Recovered/Resolved]
